FAERS Safety Report 9003906 (Version 2)
Quarter: 2013Q1

REPORT INFORMATION
  Report Type: Spontaneous
  Country: US (occurrence: US)
  Receive Date: 20130108
  Receipt Date: 20130311
  Transmission Date: 20140127
  Serious: No
  Sender: FDA-Public Use
  Company Number: US-ASTRAZENECA-2013SE00291

PATIENT
  Age: 58 Year
  Sex: Male

DRUGS (2)
  1. CRESTOR [Suspect]
     Indication: BLOOD CHOLESTEROL INCREASED
     Route: 048
     Dates: start: 201211, end: 201212
  2. LIPITOR [Suspect]
     Route: 065

REACTIONS (2)
  - Dermatitis [Recovered/Resolved]
  - Intentional drug misuse [Unknown]
